FAERS Safety Report 14013006 (Version 1)
Quarter: 2017Q3

REPORT INFORMATION
  Report Type: Spontaneous
  Country: US (occurrence: US)
  Receive Date: 20170926
  Receipt Date: 20170926
  Transmission Date: 20171128
  Serious: No
  Sender: FDA-Public Use
  Company Number: PHEH2017US029744

PATIENT
  Age: 49 Year
  Sex: Male
  Weight: 89 kg

DRUGS (9)
  1. DELTYBA [Suspect]
     Active Substance: DELAMANID
     Indication: PULMONARY TUBERCULOSIS
     Dosage: 100 MG, BID
     Route: 048
     Dates: start: 20161203
  2. LAMPRENE [Suspect]
     Active Substance: CLOFAZIMINE
     Indication: PULMONARY TUBERCULOSIS
     Dosage: 100 MG, QD
     Route: 048
     Dates: start: 20161203
  3. RIFABUTIN. [Suspect]
     Active Substance: RIFABUTIN
     Indication: PULMONARY TUBERCULOSIS
     Dosage: 150 MG, QD
     Route: 048
     Dates: start: 20170104
  4. LINEZOLIDE [Suspect]
     Active Substance: LINEZOLID
     Indication: PULMONARY TUBERCULOSIS
     Dosage: UNK
     Route: 048
     Dates: start: 20161203, end: 20170110
  5. THIORIDAZINE [Suspect]
     Active Substance: THIORIDAZINE
     Indication: PULMONARY TUBERCULOSIS
     Dosage: 25 MG, QD
     Route: 048
     Dates: start: 20170118, end: 20170208
  6. 4-AMINOSALICYLIC ACID [Suspect]
     Active Substance: AMINOSALICYLIC ACID
     Indication: PULMONARY TUBERCULOSIS
     Dosage: 13 G, QD
     Route: 042
     Dates: start: 20161203, end: 20170110
  7. TERIZIDONE [Suspect]
     Active Substance: TERIZIDONE
     Indication: PULMONARY TUBERCULOSIS
     Dosage: 250 MG, TID
     Route: 048
     Dates: start: 20161203, end: 20170116
  8. COTRIM [Suspect]
     Active Substance: SULFAMETHOXAZOLE\TRIMETHOPRIM
     Indication: PULMONARY TUBERCULOSIS
     Dosage: 960 MG, BID
     Route: 048
     Dates: start: 20161203
  9. MOXIFLOXACIN. [Suspect]
     Active Substance: MOXIFLOXACIN
     Indication: PULMONARY TUBERCULOSIS
     Dosage: 400 MG, QD
     Route: 048
     Dates: start: 20170505

REACTIONS (1)
  - Depression [Unknown]

NARRATIVE: CASE EVENT DATE: 20170701
